FAERS Safety Report 24636738 (Version 2)
Quarter: 2024Q4

REPORT INFORMATION
  Report Type: Spontaneous
  Country: JP (occurrence: JP)
  Receive Date: 20241119
  Receipt Date: 20241230
  Transmission Date: 20250114
  Serious: Yes (Death, Other)
  Sender: MERCK
  Company Number: JP-MSD-M2024-47123

PATIENT
  Age: 64 Year
  Sex: Female

DRUGS (3)
  1. KEYTRUDA [Suspect]
     Active Substance: PEMBROLIZUMAB
     Indication: Cervix carcinoma stage IV
     Dosage: 200 MILLIGRAM, Q3W
     Route: 041
     Dates: start: 202405, end: 20240827
  2. PACLITAXEL [Concomitant]
     Active Substance: PACLITAXEL
     Indication: Cervix carcinoma stage IV
     Dosage: UNK
     Route: 051
     Dates: start: 202405, end: 2024
  3. CARBOPLATIN [Concomitant]
     Active Substance: CARBOPLATIN
     Indication: Cervix carcinoma stage IV
     Dosage: UNK
     Route: 051
     Dates: start: 202405, end: 2024

REACTIONS (6)
  - Malignant neoplasm progression [Fatal]
  - Septic shock [Fatal]
  - Urogenital fistula [Unknown]
  - Cardio-respiratory arrest [Fatal]
  - Squamous cell carcinoma antigen increased [Unknown]
  - Abscess [Unknown]

NARRATIVE: CASE EVENT DATE: 20240101
